FAERS Safety Report 4856137-6 (Version None)
Quarter: 2005Q4

REPORT INFORMATION
  Report Type: 
  Country: None (occurrence: None)
  Receive Date: 20051216
  Receipt Date: 20050829
  Transmission Date: 20060501
  Serious: Yes (Hospitalization)
  Sender: FDA-Public Use
  Company Number: US-MERCK-0508USA04779

PATIENT
  Age: 74 Year
  Sex: Female
  Weight: 63 kg

DRUGS (15)
  1. VIOXX [Suspect]
     Indication: OSTEOARTHRITIS
     Route: 048
     Dates: start: 20010101, end: 20030101
  2. LIBRIUM [Concomitant]
     Route: 065
  3. NEXIUM [Concomitant]
     Route: 065
  4. XANAX [Concomitant]
     Route: 065
  5. PULMICORT [Concomitant]
     Route: 055
  6. COMBIVENT [Concomitant]
     Route: 055
  7. FLONASE [Concomitant]
     Route: 065
  8. CALCIUM (UNSPECIFIED) [Concomitant]
     Route: 065
  9. ASCORBIC ACID [Concomitant]
     Route: 065
  10. VITAMIN D (UNSPECIFIED) [Concomitant]
     Route: 065
  11. ALPHAGAN [Concomitant]
     Route: 065
  12. PREMARIN [Concomitant]
     Route: 065
  13. XALATAN [Concomitant]
     Route: 048
  14. PRILOSEC [Concomitant]
     Route: 065
  15. ASPIRIN [Concomitant]
     Route: 065

REACTIONS (18)
  - ANXIETY [None]
  - ARRHYTHMIA [None]
  - BRONCHITIS [None]
  - CARDIAC DISORDER [None]
  - CEREBROVASCULAR ACCIDENT [None]
  - CHEST PAIN [None]
  - CLUMSINESS [None]
  - DEAFNESS NEUROSENSORY [None]
  - DIZZINESS [None]
  - GASTRIC DISORDER [None]
  - HYPERLIPIDAEMIA [None]
  - LACUNAR INFARCTION [None]
  - MYOCARDIAL ISCHAEMIA [None]
  - OVERDOSE [None]
  - PALPITATIONS [None]
  - SOMNOLENCE [None]
  - SYNCOPE [None]
  - VERTIGO [None]
